FAERS Safety Report 8248947-2 (Version None)
Quarter: 2012Q2

REPORT INFORMATION
  Report Type: 
  Country: None (occurrence: None)
  Receive Date: 20120402
  Receipt Date: 20120321
  Transmission Date: 20120825
  Serious: Yes (Other)
  Sender: FDA-Public Use
  Company Number: RU-BRISTOL-MYERS SQUIBB COMPANY-16472003

PATIENT

DRUGS (5)
  1. PACLITAXEL [Suspect]
     Route: 042
  2. BEVACIZUMAB [Suspect]
     Route: 042
  3. ZOFRAN [Concomitant]
  4. CISPLATIN [Suspect]
     Route: 042
  5. METOCLOPRAMIDE [Concomitant]

REACTIONS (5)
  - DEEP VEIN THROMBOSIS [None]
  - HAEMOPTYSIS [None]
  - THROMBOCYTOPENIA [None]
  - BLOOD PRESSURE INCREASED [None]
  - EMBOLISM [None]
